FAERS Safety Report 10186217 (Version 2)
Quarter: 2014Q2

REPORT INFORMATION
  Report Type: Report from Study
  Country: NL (occurrence: NL)
  Receive Date: 20140521
  Receipt Date: 20140528
  Transmission Date: 20141212
  Serious: Yes (Hospitalization)
  Sender: FDA-Public Use
  Company Number: NL-GLAXOSMITHKLINE-B0962169B

PATIENT
  Age: 70 Year
  Sex: Male

DRUGS (7)
  1. PAZOPANIB [Suspect]
     Indication: RENAL CELL CARCINOMA
     Dosage: 600MG PER DAY
     Route: 048
     Dates: start: 20140127, end: 20140418
  2. EVEROLIMUS [Suspect]
     Indication: RENAL CELL CARCINOMA
     Route: 048
     Dates: start: 20140218
  3. METFORMINE [Concomitant]
     Dosage: 500MG THREE TIMES PER DAY
  4. SOLIFENACIN SUCCINATE [Concomitant]
     Dosage: 5ML TWICE PER DAY
  5. RANITIDINE [Concomitant]
     Dosage: 150ML TWICE PER DAY
     Dates: start: 20140113
  6. MACROGOL [Concomitant]
     Dates: start: 20140115
  7. ALFUZOSINE [Concomitant]
     Dosage: 10ML PER DAY

REACTIONS (2)
  - Malaise [Unknown]
  - Pyrexia [Unknown]
